FAERS Safety Report 6348607-9 (Version None)
Quarter: 2009Q3

REPORT INFORMATION
  Report Type: 
  Country: None (occurrence: None)
  Receive Date: 20090911
  Receipt Date: 20090901
  Transmission Date: 20100115
  Serious: Yes (Death, Hospitalization, Other)
  Sender: FDA-Public Use
  Company Number: US-ROCHE-86240

PATIENT
  Sex: Male

DRUGS (22)
  1. CEFTRIAXONE SODIUM [Suspect]
     Indication: OPPORTUNISTIC INFECTION PROPHYLAXIS
     Route: 065
     Dates: start: 19960508
  2. INVIRASE [Suspect]
     Indication: HIV INFECTION
     Route: 048
     Dates: start: 19960501
  3. VERSED [Suspect]
     Indication: AGITATION
     Route: 065
     Dates: start: 19960508
  4. TRIMETHOPRIM [Suspect]
     Route: 065
  5. AMPICILLIN [Suspect]
     Indication: OPPORTUNISTIC INFECTION PROPHYLAXIS
     Route: 065
     Dates: start: 19960508
  6. AZT [Suspect]
     Indication: ANTIRETROVIRAL THERAPY
     Route: 065
  7. 3TC [Suspect]
     Indication: ANTIRETROVIRAL THERAPY
     Route: 065
  8. SULPHADIAZINE [Suspect]
     Indication: DRUG USE FOR UNKNOWN INDICATION
     Route: 065
  9. DILANTIN [Suspect]
     Indication: DRUG USE FOR UNKNOWN INDICATION
     Route: 065
  10. HYDROXYZINE [Suspect]
     Indication: DRUG USE FOR UNKNOWN INDICATION
     Dosage: TAKEN AS NEEDED
     Route: 065
  11. METHADONE HCL [Suspect]
     Indication: DRUG USE FOR UNKNOWN INDICATION
     Dosage: TAKEN FOR MAINTENANCE
     Route: 065
  12. ETHAMBUTOL [Suspect]
     Route: 065
  13. FOLIC ACID [Suspect]
     Indication: DRUG USE FOR UNKNOWN INDICATION
     Route: 065
  14. PYRIMETHAMINE TAB [Suspect]
     Indication: DRUG USE FOR UNKNOWN INDICATION
     Route: 065
  15. ATIVAN [Suspect]
     Indication: AGITATION
     Route: 065
     Dates: start: 19960508
  16. HALDOL [Suspect]
     Indication: AGITATION
     Route: 065
     Dates: start: 19960508
  17. PEPCID [Suspect]
     Indication: DRUG USE FOR UNKNOWN INDICATION
     Route: 065
     Dates: start: 19960508
  18. CLINDAMYCIN [Suspect]
     Indication: TOXOPLASMOSIS
     Route: 065
     Dates: start: 19960508
  19. ACYCLOVIR [Suspect]
     Indication: ANTIVIRAL PROPHYLAXIS
     Route: 065
     Dates: start: 19960508
  20. MANNITOL [Suspect]
     Indication: DRUG USE FOR UNKNOWN INDICATION
     Route: 065
     Dates: start: 19960508
  21. MORPHINE [Suspect]
     Indication: DRUG USE FOR UNKNOWN INDICATION
     Dosage: FORM: DRIP
     Route: 065
     Dates: start: 19960509
  22. COCAINE [Suspect]
     Indication: DRUG USE FOR UNKNOWN INDICATION
     Route: 065

REACTIONS (13)
  - AGITATION [None]
  - ATAXIA [None]
  - BLOOD CREATINE PHOSPHOKINASE INCREASED [None]
  - BLOOD MAGNESIUM DECREASED [None]
  - BLOOD POTASSIUM DECREASED [None]
  - DYSKINESIA [None]
  - HEADACHE [None]
  - HYPOTENSION [None]
  - MENTAL STATUS CHANGES [None]
  - MUSCULAR WEAKNESS [None]
  - TORSADE DE POINTES [None]
  - VENTRICULAR ARRHYTHMIA [None]
  - VENTRICULAR EXTRASYSTOLES [None]
